FAERS Safety Report 22136751 (Version 1)
Quarter: 2023Q1

REPORT INFORMATION
  Report Type: Spontaneous
  Country: US (occurrence: None)
  Receive Date: 20230323
  Receipt Date: 20230323
  Transmission Date: 20230417
  Serious: Yes (Hospitalization, Other)
  Sender: FDA-Public Use
  Company Number: None

PATIENT
  Age: 67 Year
  Sex: Male
  Weight: 97 kg

DRUGS (1)
  1. ROMIDEPSIN [Suspect]
     Active Substance: ROMIDEPSIN
     Indication: Cutaneous T-cell lymphoma
     Dosage: OTHER FREQUENCY : 2/21+28, 3/7+3/21;?
     Route: 042

REACTIONS (3)
  - Therapy change [None]
  - Atrial fibrillation [None]
  - Bundle branch block left [None]

NARRATIVE: CASE EVENT DATE: 20230322
